FAERS Safety Report 11931551 (Version 4)
Quarter: 2016Q4

REPORT INFORMATION
  Report Type: Spontaneous
  Country: DK (occurrence: DK)
  Receive Date: 20160120
  Receipt Date: 20161208
  Transmission Date: 20170206
  Serious: Yes (Hospitalization)
  Sender: FDA-Public Use
  Company Number: PHHY2016DK003859

PATIENT
  Age: 43 Year
  Sex: Female
  Weight: 50 kg

DRUGS (9)
  1. METHOTREXATE (METHOTREXATE SODIUM) [Suspect]
     Active Substance: METHOTREXATE SODIUM
     Dosage: 10 MG, QW
     Route: 048
     Dates: start: 20140529, end: 20141107
  2. METHOTREXATE (METHOTREXATE SODIUM) [Suspect]
     Active Substance: METHOTREXATE SODIUM
     Dosage: PAUSE
     Route: 048
     Dates: start: 20120116, end: 20120823
  3. REMICADE [Suspect]
     Active Substance: INFLIXIMAB
     Indication: PSORIATIC ARTHROPATHY
     Dosage: 150 MG, QW, STRENGTH: 100 MG
     Route: 065
     Dates: start: 20081022, end: 20120224
  4. REMICADE [Suspect]
     Active Substance: INFLIXIMAB
     Dosage: 150 MG, UNK
     Route: 065
     Dates: start: 20110119, end: 20111222
  5. METHOTREXATE (METHOTREXATE SODIUM) [Suspect]
     Active Substance: METHOTREXATE SODIUM
     Dosage: 7.5 MG, QW
     Route: 048
     Dates: start: 20140529
  6. REMICADE [Suspect]
     Active Substance: INFLIXIMAB
     Dosage: DOSAGE FORM: LYOPHILIZED POWDER
     Route: 042
     Dates: start: 20081022, end: 20120224
  7. REMICADE [Suspect]
     Active Substance: INFLIXIMAB
     Dosage: STYRKE: 100 MG.
     Route: 065
     Dates: start: 20081022, end: 20120224
  8. METHOTREXATE (METHOTREXATE SODIUM) [Suspect]
     Active Substance: METHOTREXATE SODIUM
     Indication: PSORIATIC ARTHROPATHY
     Dosage: 15 MG, QW
     Route: 048
     Dates: start: 20081022, end: 20140407
  9. REMICADE [Suspect]
     Active Substance: INFLIXIMAB
     Dosage: DOSAGE FORM: LYOPHILIZED POWDER
     Route: 042

REACTIONS (7)
  - Lymphocytosis [Unknown]
  - Dyspnoea [Unknown]
  - Interstitial lung disease [Unknown]
  - Fatigue [Unknown]
  - Cough [Unknown]
  - Weight decreased [Unknown]
  - Pulmonary function test decreased [Unknown]

NARRATIVE: CASE EVENT DATE: 201111
